FAERS Safety Report 9257431 (Version 1)
Quarter: 2013Q2

REPORT INFORMATION
  Report Type: Spontaneous
  Country: US (occurrence: US)
  Receive Date: 20130426
  Receipt Date: 20130426
  Transmission Date: 20140414
  Serious: No
  Sender: FDA-Public Use
  Company Number: US-PFIZER INC-2013127165

PATIENT
  Age: 37 Year
  Sex: Female
  Weight: 56.69 kg

DRUGS (3)
  1. LEVOXYL [Suspect]
     Dosage: 100 UG, UNK
     Route: 048
  2. LEVOXYL [Suspect]
     Dosage: 200 UG, UNK
     Route: 048
  3. LEVOXYL [Suspect]
     Dosage: 75 UG, UNK
     Route: 048

REACTIONS (1)
  - Fatigue [Unknown]
